FAERS Safety Report 7085812-0 (Version None)
Quarter: 2010Q4

REPORT INFORMATION
  Report Type: 
  Country: None (occurrence: None)
  Receive Date: 20101105
  Receipt Date: 20101026
  Transmission Date: 20110411
  Serious: Yes (Hospitalization, Other)
  Sender: FDA-Public Use
  Company Number: US-ROCHE-729373

PATIENT
  Sex: Female
  Weight: 53.5 kg

DRUGS (5)
  1. CELLCEPT [Suspect]
     Indication: OCULAR PEMPHIGOID
     Route: 048
     Dates: start: 20000501, end: 20100101
  2. CELLCEPT [Suspect]
     Dosage: FORM: LIQUID SUSPENSION
     Route: 065
     Dates: start: 20100101
  3. PLAVIX [Concomitant]
  4. LEXAPRO [Concomitant]
  5. GLUCOPHAGE [Concomitant]

REACTIONS (7)
  - ABASIA [None]
  - CEREBRAL CIRCULATORY FAILURE [None]
  - DIABETES MELLITUS [None]
  - DYSPHAGIA [None]
  - HYPERTENSION [None]
  - HYPOTHYROIDISM [None]
  - MUSCLE DISORDER [None]
